FAERS Safety Report 5379244-0 (Version None)
Quarter: 2007Q3

REPORT INFORMATION
  Report Type: 
  Country: None (occurrence: None)
  Receive Date: 20070705
  Receipt Date: 20070627
  Transmission Date: 20080115
  Serious: Yes (Hospitalization)
  Sender: FDA-Public Use
  Company Number: US-ROXANE LABORATORIES, INC-2007-BP-16366RO

PATIENT
  Age: 75 Year
  Sex: Female

DRUGS (6)
  1. HYDROMORPHONE HCL [Suspect]
     Indication: POSTOPERATIVE ANALGESIA
     Dosage: 1 MG Q4H PRN X 2 DOSES
     Route: 042
  2. MORPHINE [Suspect]
     Indication: POSTOPERATIVE ANALGESIA
     Dosage: 2 MG Q4H
     Route: 042
  3. FUROSEMIDE [Concomitant]
     Route: 048
  4. ANGIOTENSIN-CONVERTING ENZYME INHIBITOR [Concomitant]
     Route: 048
  5. STATIN [Concomitant]
     Route: 048
  6. ASPIRIN [Concomitant]
     Route: 048

REACTIONS (5)
  - ANAPHYLACTOID REACTION [None]
  - DYSPNOEA [None]
  - RESPIRATORY DISTRESS [None]
  - TREATMENT FAILURE [None]
  - WHEEZING [None]
